FAERS Safety Report 21742289 (Version 1)
Quarter: 2022Q4

REPORT INFORMATION
  Report Type: Spontaneous
  Country: US (occurrence: None)
  Receive Date: 20221216
  Receipt Date: 20221216
  Transmission Date: 20230113
  Serious: No
  Sender: FDA-Public Use
  Company Number: None

PATIENT
  Age: 61 Year
  Sex: Female
  Weight: 133.36 kg

DRUGS (19)
  1. CAPECITABINE [Suspect]
     Active Substance: CAPECITABINE
     Indication: Colon cancer
     Dosage: FREQUENCY : TWICE A DAY;?
     Route: 048
  2. AMLODIPINE [Concomitant]
  3. CLINDAMYCIN [Concomitant]
  4. COLACE [Concomitant]
  5. CYCLOBENZAPRINE [Concomitant]
  6. DEXAMETHASONE [Concomitant]
  7. ELIQUIS [Concomitant]
     Active Substance: APIXABAN
  8. LIDOCAINE [Concomitant]
  9. LOMOTIL [Concomitant]
  10. LONSURF [Concomitant]
  11. LORAZEPAM [Concomitant]
  12. OMEPRAZOLE [Concomitant]
  13. ONDANSETRON [Concomitant]
  14. OXYBUTYNIN [Concomitant]
     Active Substance: OXYBUTYNIN
  15. PALONESTRON [Concomitant]
  16. POTASSIUM CHLORIDE [Concomitant]
  17. PREDNISONE [Concomitant]
  18. PROCHLORPERAZINE [Concomitant]
  19. PROPRANOLOL [Concomitant]
     Active Substance: PROPRANOLOL HYDROCHLORIDE

REACTIONS (1)
  - Disease progression [None]
